FAERS Safety Report 7429364-1 (Version None)
Quarter: 2011Q2

REPORT INFORMATION
  Report Type: 
  Country: None (occurrence: None)
  Receive Date: 20110418
  Receipt Date: 20110418
  Transmission Date: 20111010
  Serious: Yes (Death)
  Sender: FDA-Public Use
  Company Number: None

PATIENT
  Age: 59 Year
  Sex: Female
  Weight: 99.7913 kg

DRUGS (8)
  1. FENTANYL [Suspect]
     Indication: MUSCULOSKELETAL PAIN
     Dosage: 50 MCG/HR Q3DAYS TRANSDERMAL
     Route: 062
  2. FENTANYL [Suspect]
     Indication: ARTHRALGIA
     Dosage: 50 MCG/HR Q3DAYS TRANSDERMAL
     Route: 062
  3. FENTANYL [Suspect]
     Indication: NECK PAIN
     Dosage: 50 MCG/HR Q3DAYS TRANSDERMAL
     Route: 062
  4. FENTANYL [Suspect]
     Indication: MIGRAINE
     Dosage: 50 MCG/HR Q3DAYS TRANSDERMAL
     Route: 062
  5. FENTANYL [Suspect]
     Indication: NECK PAIN
     Dosage: 50 MCG/HR Q 3 DAYS TRANSDERMAL
     Route: 062
     Dates: start: 20110117, end: 20110118
  6. FENTANYL [Suspect]
     Indication: MIGRAINE
     Dosage: 50 MCG/HR Q 3 DAYS TRANSDERMAL
     Route: 062
     Dates: start: 20110117, end: 20110118
  7. FENTANYL [Suspect]
     Indication: MUSCULOSKELETAL PAIN
     Dosage: 50 MCG/HR Q 3 DAYS TRANSDERMAL
     Route: 062
     Dates: start: 20110117, end: 20110118
  8. FENTANYL [Suspect]
     Indication: ARTHRALGIA
     Dosage: 50 MCG/HR Q 3 DAYS TRANSDERMAL
     Route: 062
     Dates: start: 20110117, end: 20110118

REACTIONS (4)
  - TOXICITY TO VARIOUS AGENTS [None]
  - ACCIDENTAL DEATH [None]
  - PRODUCT QUALITY ISSUE [None]
  - DEVICE MALFUNCTION [None]
